FAERS Safety Report 14598582 (Version 1)
Quarter: 2018Q1

REPORT INFORMATION
  Report Type: Spontaneous
  Country: US (occurrence: US)
  Receive Date: 20180302
  Receipt Date: 20180302
  Transmission Date: 20180509
  Serious: Yes (Disabling)
  Sender: FDA-Public Use
  Company Number: None

PATIENT
  Age: 60 Year
  Sex: Female

DRUGS (3)
  1. MVI [Concomitant]
     Active Substance: VITAMINS
  2. LEVAQUIN [Suspect]
     Active Substance: LEVOFLOXACIN
     Indication: PNEUMONIA
     Dosage: ?          QUANTITY:1 TABLET(S);?
     Route: 048
  3. HERBAL SUPPLEMENTS [Concomitant]
     Active Substance: HERBALS

REACTIONS (3)
  - Fatigue [None]
  - Pain in extremity [None]
  - Musculoskeletal disorder [None]

NARRATIVE: CASE EVENT DATE: 20180210
